FAERS Safety Report 4370007-1 (Version None)
Quarter: 2004Q2

REPORT INFORMATION
  Report Type: 
  Country: None (occurrence: None)
  Receive Date: 20040603
  Receipt Date: 20040525
  Transmission Date: 20050107
  Serious: Yes (Other)
  Sender: FDA-Public Use
  Company Number: CZ-GLAXOSMITHKLINE-B0334105A

PATIENT
  Age: 67 Year
  Sex: Male

DRUGS (6)
  1. SERETIDE [Suspect]
     Route: 055
     Dates: start: 20040418, end: 20040428
  2. ECOSAL [Concomitant]
  3. PRESTARIUM [Concomitant]
  4. XATRAL [Concomitant]
  5. RHEFLUIN [Concomitant]
  6. ISOPTIN TAB [Concomitant]

REACTIONS (2)
  - BENIGN PROSTATIC HYPERPLASIA [None]
  - URINARY RETENTION [None]
